FAERS Safety Report 9989855 (Version 1)
Quarter: 2014Q1

REPORT INFORMATION
  Report Type: Report from Study
  Country: US (occurrence: US)
  Receive Date: 20140310
  Receipt Date: 20140310
  Transmission Date: 20141002
  Serious: No
  Sender: FDA-Public Use
  Company Number: US-ABBVIE-13P-163-1132668-00

PATIENT
  Age: 70 Year
  Sex: Female

DRUGS (8)
  1. HUMIRA [Suspect]
     Indication: CROHN^S DISEASE
     Dates: start: 20130627
  2. ASACOL [Concomitant]
     Indication: CROHN^S DISEASE
     Dosage: 6 TABLETS
  3. PANTOPRAZOLE [Concomitant]
     Indication: GASTROOESOPHAGEAL REFLUX DISEASE
  4. FISH OIL [Concomitant]
     Indication: PRODUCT USED FOR UNKNOWN INDICATION
     Dosage: DAILY
  5. CRESTOR [Concomitant]
     Indication: BLOOD CHOLESTEROL INCREASED
  6. FOLIC ACID [Concomitant]
     Indication: PRODUCT USED FOR UNKNOWN INDICATION
  7. LISINOPRIL [Concomitant]
     Indication: HYPERTENSION
  8. ANTI NAUSEA [Concomitant]
     Indication: PRODUCT USED FOR UNKNOWN INDICATION

REACTIONS (2)
  - Injection site nodule [Recovered/Resolved]
  - Injection site bruising [Not Recovered/Not Resolved]
